FAERS Safety Report 8400322-3 (Version None)
Quarter: 2012Q2

REPORT INFORMATION
  Report Type: 
  Country: None (occurrence: None)
  Receive Date: 20120525
  Receipt Date: 20120514
  Transmission Date: 20120825
  Serious: Yes (Other)
  Sender: FDA-Public Use
  Company Number: AUR-APL-2012-02014

PATIENT
  Age: 62 Year
  Sex: Female
  Weight: 81.2 kg

DRUGS (5)
  1. SIMVASTATIN [Suspect]
     Indication: BLOOD CHOLESTEROL INCREASED
     Dosage: (5 MG,1 D) ; (10 MG,1 D) ; (15 MG,1 D)
     Dates: start: 20100101
  2. XANAX [Concomitant]
  3. NORVASC [Concomitant]
     Indication: HYPERTENSION
     Dosage: (10 MG,1 D),ORAL
     Route: 048
     Dates: start: 20100101
  4. LEVAQUIN [Suspect]
     Indication: PRODUCT USED FOR UNKNOWN INDICATION
  5. MEDROL [Suspect]
     Indication: INTERVERTEBRAL DISC DISORDER
     Dates: start: 20100101, end: 20100101

REACTIONS (5)
  - TRANSIENT ISCHAEMIC ATTACK [None]
  - JOINT SWELLING [None]
  - DIZZINESS [None]
  - VITAMIN D DECREASED [None]
  - ARTERIOSCLEROSIS CORONARY ARTERY [None]
